FAERS Safety Report 10461017 (Version 1)
Quarter: 2014Q3

REPORT INFORMATION
  Report Type: Spontaneous
  Country: DE (occurrence: None)
  Receive Date: 20140909
  Receipt Date: 20140909
  Transmission Date: 20150326
  Serious: Yes (Other)
  Sender: FDA-Public Use
  Company Number: IG002518

PATIENT
  Age: 29 Year
  Sex: Female

DRUGS (1)
  1. IGIVNEX [Suspect]
     Active Substance: HUMAN IMMUNOGLOBULIN G
     Indication: PRODUCT USED FOR UNKNOWN INDICATION

REACTIONS (4)
  - Cerebrovascular accident [None]
  - Vasospasm [None]
  - Posterior reversible encephalopathy syndrome [None]
  - General physical health deterioration [None]
